FAERS Safety Report 14535110 (Version 1)
Quarter: 2018Q1

REPORT INFORMATION
  Report Type: Spontaneous
  Country: US (occurrence: US)
  Receive Date: 20180214
  Receipt Date: 20180214
  Transmission Date: 20180509
  Serious: No
  Sender: FDA-Public Use
  Company Number: None

PATIENT
  Age: 42 Year
  Sex: Female
  Weight: 82 kg

DRUGS (3)
  1. GILENYA [Suspect]
     Active Substance: FINGOLIMOD HYDROCHLORIDE
     Indication: MULTIPLE SCLEROSIS
     Route: 048
     Dates: start: 20110511, end: 20180214
  2. GABAPENTIN. [Concomitant]
     Active Substance: GABAPENTIN
  3. PROVIGIL [Concomitant]
     Active Substance: MODAFINIL

REACTIONS (1)
  - Retinal aneurysm [None]

NARRATIVE: CASE EVENT DATE: 20180125
